FAERS Safety Report 19686689 (Version 1)
Quarter: 2021Q3

REPORT INFORMATION
  Report Type: Spontaneous
  Country: IL (occurrence: IL)
  Receive Date: 20210811
  Receipt Date: 20210811
  Transmission Date: 20211014
  Serious: Yes (Hospitalization)
  Sender: FDA-Public Use
  Company Number: IL-009507513-2108ISR002300

PATIENT
  Age: 35 Year
  Sex: Female

DRUGS (1)
  1. KEYTRUDA [Suspect]
     Active Substance: PEMBROLIZUMAB
     Indication: ENDOMETRIAL CANCER
     Dosage: UNK
     Route: 042

REACTIONS (9)
  - Erythema [Unknown]
  - Blood pressure decreased [Unknown]
  - Incorrect drug administration rate [Unknown]
  - Chills [Unknown]
  - Pyrexia [Unknown]
  - Tachycardia [Unknown]
  - Product prescribing issue [Unknown]
  - Blood creatine phosphokinase increased [Recovered/Resolved]
  - Off label use [Unknown]

NARRATIVE: CASE EVENT DATE: 2021
